FAERS Safety Report 4523423-9 (Version None)
Quarter: 2004Q4

REPORT INFORMATION
  Report Type: 
  Country: None (occurrence: None)
  Receive Date: 20041209
  Receipt Date: 20041124
  Transmission Date: 20050328
  Serious: Yes (Hospitalization)
  Sender: FDA-Public Use
  Company Number: 205551

PATIENT
  Age: 34 Year
  Sex: Female

DRUGS (4)
  1. AVONEX [Suspect]
     Indication: MULTIPLE SCLEROSIS
     Dosage: QW; IM
     Route: 030
     Dates: start: 19970101, end: 19990101
  2. AVONEX [Suspect]
     Indication: MULTIPLE SCLEROSIS
     Dosage: QW; IM
     Route: 030
     Dates: start: 20000101, end: 20040801
  3. NOVANTRONE [Concomitant]
  4. SOLU-MEDROL [Concomitant]

REACTIONS (5)
  - CARDIAC FAILURE [None]
  - CARDIOGENIC SHOCK [None]
  - CARDIOTOXICITY [None]
  - DYSPNOEA [None]
  - PREGNANCY [None]
